FAERS Safety Report 25654104 (Version 1)
Quarter: 2025Q3

REPORT INFORMATION
  Report Type: Spontaneous
  Country: US (occurrence: US)
  Receive Date: 20250807
  Receipt Date: 20250807
  Transmission Date: 20251020
  Serious: No
  Sender: ITALFARMACO SPA
  Company Number: US-ITALFARMACO SPA-2182037

PATIENT
  Age: 77 Year
  Sex: Male
  Weight: 67.574 kg

DRUGS (4)
  1. TIGLUTIK [Suspect]
     Active Substance: RILUZOLE
     Indication: Amyotrophic lateral sclerosis
     Dates: start: 20241002
  2. RADICAVA [Concomitant]
     Active Substance: EDARAVONE
  3. TRANSDERM SCOP [Concomitant]
     Active Substance: SCOPOLAMINE
  4. ATROPINE [Concomitant]
     Active Substance: ATROPINE

REACTIONS (1)
  - Nasopharyngeal reflux [Not Recovered/Not Resolved]

NARRATIVE: CASE EVENT DATE: 20241002
